FAERS Safety Report 15707250 (Version 1)
Quarter: 2018Q4

REPORT INFORMATION
  Report Type: Report from Study
  Country: None (occurrence: US)
  Receive Date: 20181210
  Receipt Date: 20181210
  Transmission Date: 20190205
  Serious: Yes (Hospitalization, Congenital Anomaly, Other)
  Sender: FDA-Public Use
  Company Number: US-ABBVIE-18K-163-2582354-00

PATIENT
  Age: 0 Year
  Sex: Male
  Weight: 2.58 kg

DRUGS (1)
  1. HUMIRA [Suspect]
     Active Substance: ADALIMUMAB
     Indication: EXPOSURE VIA BODY FLUID
     Route: 050

REACTIONS (7)
  - Cerebral ventricle dilatation [Unknown]
  - Pulmonary malformation [Unknown]
  - Congenital central nervous system anomaly [Unknown]
  - Foetal exposure during pregnancy [Unknown]
  - Blood glucose decreased [Unknown]
  - Premature baby [Unknown]
  - Hypotension [Unknown]

NARRATIVE: CASE EVENT DATE: 2018
